FAERS Safety Report 24911511 (Version 2)
Quarter: 2025Q2

REPORT INFORMATION
  Report Type: Report from Study
  Country: US (occurrence: US)
  Receive Date: 20250131
  Receipt Date: 20250402
  Transmission Date: 20250716
  Serious: Yes (Hospitalization)
  Sender: FERRING
  Company Number: US-FERRINGPH-2025FE00346

PATIENT

DRUGS (1)
  1. NADOFARAGENE FIRADENOVEC [Suspect]
     Active Substance: NADOFARAGENE FIRADENOVEC
     Indication: Product used for unknown indication
     Dosage: 75 ML, ONCE/SINGLE
     Route: 043
     Dates: start: 20241023, end: 20241023

REACTIONS (5)
  - Seizure [Not Recovered/Not Resolved]
  - Blister [Not Recovered/Not Resolved]
  - Hyperhidrosis [Not Recovered/Not Resolved]
  - Headache [Not Recovered/Not Resolved]
  - Dysuria [Not Recovered/Not Resolved]

NARRATIVE: CASE EVENT DATE: 20240101
